FAERS Safety Report 10631408 (Version 1)
Quarter: 2014Q4

REPORT INFORMATION
  Report Type: Spontaneous
  Country: US (occurrence: US)
  Receive Date: 20141205
  Receipt Date: 20141205
  Transmission Date: 20150529
  Serious: No
  Sender: FDA-Public Use
  Company Number: US-BRISTOL-MYERS SQUIBB COMPANY-20967014

PATIENT
  Age: 58 Year
  Sex: Female
  Weight: 96.14 kg

DRUGS (1)
  1. ABATACEPT SUBQ INJECTION 125MG/ML [Suspect]
     Active Substance: ABATACEPT
     Indication: RHEUMATOID ARTHRITIS
     Dosage: 1 DF=125 MG/ML
     Route: 058
     Dates: start: 20110605

REACTIONS (3)
  - Solar lentigo [Unknown]
  - Hepatic steatosis [Unknown]
  - Nasopharyngitis [Unknown]
